FAERS Safety Report 5157813-0 (Version None)
Quarter: 2006Q4

REPORT INFORMATION
  Report Type: 
  Country: None (occurrence: None)
  Receive Date: 20061120
  Receipt Date: 20061120
  Transmission Date: 20070319
  Serious: Yes (Other)
  Sender: FDA-Public Use
  Company Number: None

PATIENT
  Age: 61 Year
  Sex: Male

DRUGS (6)
  1. REVLIMID [Suspect]
     Indication: MYELODYSPLASTIC SYNDROME
     Dosage: 10MG DAILY PO
     Route: 048
     Dates: start: 20060920, end: 20061115
  2. PREDNISONE TAB [Concomitant]
  3. VICODIN [Concomitant]
  4. HYDROXYCHLOROQUINE SULFATE [Concomitant]
  5. DOXYCYCLINE [Concomitant]
  6. FOSAMAX [Concomitant]

REACTIONS (1)
  - PLATELET COUNT DECREASED [None]
